FAERS Safety Report 22648141 (Version 1)
Quarter: 2023Q2

REPORT INFORMATION
  Report Type: Spontaneous
  Country: AT (occurrence: AT)
  Receive Date: 20230628
  Receipt Date: 20230628
  Transmission Date: 20230722
  Serious: Yes (Other)
  Sender: FDA-Public Use
  Company Number: AT-ABBVIE-5307063

PATIENT
  Sex: Female

DRUGS (2)
  1. RINVOQ [Suspect]
     Active Substance: UPADACITINIB
     Indication: Rheumatoid arthritis
     Route: 048
     Dates: start: 202011
  2. EVOLOCUMAB [Concomitant]
     Active Substance: EVOLOCUMAB
     Indication: Adverse event

REACTIONS (5)
  - Diverticulitis intestinal perforated [Unknown]
  - Pain [Unknown]
  - Type 2 diabetes mellitus [Unknown]
  - Low density lipoprotein abnormal [Unknown]
  - Joint swelling [Unknown]

NARRATIVE: CASE EVENT DATE: 20210401
